FAERS Safety Report 18077976 (Version 1)
Quarter: 2020Q3

REPORT INFORMATION
  Report Type: Spontaneous
  Country: US (occurrence: US)
  Receive Date: 20200727
  Receipt Date: 20200727
  Transmission Date: 20201103
  Serious: No
  Sender: FDA-Public Use
  Company Number: US-SEATTLE GENETICS-2020SGN02112

PATIENT
  Sex: Female

DRUGS (2)
  1. TUKYSA [Suspect]
     Active Substance: TUCATINIB
     Indication: BREAST CANCER
  2. TUKYSA [Suspect]
     Active Substance: TUCATINIB
     Indication: BREAST CANCER STAGE IV

REACTIONS (5)
  - Abnormal dreams [Unknown]
  - Headache [Unknown]
  - Nausea [Unknown]
  - Hypersomnia [Unknown]
  - Diarrhoea [Unknown]
